FAERS Safety Report 10009623 (Version 2)
Quarter: 2014Q1

REPORT INFORMATION
  Report Type: Spontaneous
  Country: US (occurrence: US)
  Receive Date: 20140312
  Receipt Date: 20140312
  Transmission Date: 20141002
  Serious: Yes (Other)
  Sender: FDA-Public Use
  Company Number: US-INCYTE CORPORATION-2012IN001713

PATIENT
  Age: 65 Year
  Sex: Male
  Weight: 106.12 kg

DRUGS (11)
  1. JAKAFI [Suspect]
     Indication: MYELOFIBROSIS
     Dosage: 20 MG, BID
     Route: 048
     Dates: start: 20120803
  2. JAKAFI [Suspect]
     Dosage: 10 MG, BID
     Route: 048
     Dates: start: 20120831
  3. JAKAFI [Suspect]
     Dosage: 5 MG, BID
     Dates: start: 20121102
  4. LEVOTHROID [Concomitant]
     Dosage: 275 MCG, QD
  5. LOSARTAN [Concomitant]
     Dosage: 25 MG, QD
  6. ASPIRIN [Concomitant]
     Dosage: 325 MG, QD
  7. MEDROL [Concomitant]
  8. OMEPRAZOLE [Concomitant]
  9. ZOLPIDEM [Concomitant]
  10. TEMAZEPAM [Concomitant]
  11. ALBUTEROL [Concomitant]

REACTIONS (3)
  - Haematocrit decreased [Recovering/Resolving]
  - Haemoglobin decreased [Recovering/Resolving]
  - Aspartate aminotransferase increased [Recovering/Resolving]
